FAERS Safety Report 7489830-X (Version None)
Quarter: 2011Q2

REPORT INFORMATION
  Report Type: 
  Country: None (occurrence: None)
  Receive Date: 20110519
  Receipt Date: 20090204
  Transmission Date: 20111010
  Serious: No
  Sender: FDA-Public Use
  Company Number: 2009BI004067

PATIENT
  Sex: Female

DRUGS (2)
  1. TYSABRI [Suspect]
     Indication: MULTIPLE SCLEROSIS
     Route: 042
     Dates: start: 20081016, end: 20101115
  2. TYSABRI [Suspect]
     Route: 042
     Dates: start: 20110307

REACTIONS (21)
  - QUALITY OF LIFE DECREASED [None]
  - DEPRESSION [None]
  - FATIGUE [None]
  - AMNESIA [None]
  - MUSCULOSKELETAL STIFFNESS [None]
  - FALL [None]
  - ASTHENIA [None]
  - DYSGEUSIA [None]
  - EYE MOVEMENT DISORDER [None]
  - VISUAL IMPAIRMENT [None]
  - WHITE BLOOD CELL COUNT INCREASED [None]
  - MUSCLE ATROPHY [None]
  - NYSTAGMUS [None]
  - METAMORPHOPSIA [None]
  - NAUSEA [None]
  - ARTHRALGIA [None]
  - MIGRAINE [None]
  - DIZZINESS [None]
  - GAIT DISTURBANCE [None]
  - ALOPECIA [None]
  - CONSTIPATION [None]
